FAERS Safety Report 9365133 (Version 1)
Quarter: 2013Q2

REPORT INFORMATION
  Report Type: Spontaneous
  Country: HR (occurrence: HR)
  Receive Date: 20130624
  Receipt Date: 20130624
  Transmission Date: 20140414
  Serious: Yes (Other)
  Sender: FDA-Public Use
  Company Number: PHHY2013HR062699

PATIENT
  Age: 11 Year
  Sex: Male

DRUGS (1)
  1. CEFTRIAXONE [Suspect]
     Indication: SUBDURAL EMPYEMA
     Dosage: 100 MG/KG/24 HOURS FOR 13 DAYS

REACTIONS (3)
  - Nephrolithiasis [Recovered/Resolved]
  - Cholelithiasis [Recovered/Resolved]
  - Urine calcium increased [Recovered/Resolved]
